FAERS Safety Report 9448521 (Version 1)
Quarter: 2013Q3

REPORT INFORMATION
  Report Type: Spontaneous
  Country: US (occurrence: US)
  Receive Date: 20130808
  Receipt Date: 20130808
  Transmission Date: 20140515
  Serious: Yes (Other)
  Sender: FDA-Public Use
  Company Number: US-ELI_LILLY_AND_COMPANY-US201308000979

PATIENT
  Sex: Male

DRUGS (2)
  1. CIALIS [Suspect]
     Indication: ERECTILE DYSFUNCTION
     Dosage: 5 MG, QD
     Route: 048
  2. VIAGRA [Interacting]
     Indication: ERECTILE DYSFUNCTION
     Dosage: 1 DF, UNKNOWN
     Route: 048

REACTIONS (3)
  - Blindness transient [Recovered/Resolved]
  - Drug interaction [Unknown]
  - Inappropriate schedule of drug administration [Unknown]
